FAERS Safety Report 8418890-4 (Version None)
Quarter: 2012Q2

REPORT INFORMATION
  Report Type: 
  Country: None (occurrence: None)
  Receive Date: 20120607
  Receipt Date: 20120525
  Transmission Date: 20120825
  Serious: Yes (Other)
  Sender: FDA-Public Use
  Company Number: US-ROCHE-1073161

PATIENT

DRUGS (5)
  1. AVASTIN [Suspect]
     Indication: PANCREATIC CARCINOMA
     Route: 042
  2. LEUCOVORIN CALCIUM [Suspect]
     Indication: PANCREATIC CARCINOMA
     Dosage: ROUTE: IVP
     Route: 042
  3. FLUOROURACIL [Suspect]
     Indication: PANCREATIC CARCINOMA
     Dosage: ROUTE: AMBULATORY PUMP
     Route: 050
  4. PACLITAXEL [Suspect]
     Indication: PANCREATIC CARCINOMA
     Route: 042
  5. OXALIPLATIN [Suspect]
     Indication: PANCREATIC CARCINOMA
     Route: 042

REACTIONS (7)
  - DIARRHOEA [None]
  - HYPERTENSION [None]
  - FATIGUE [None]
  - NEUROPATHY PERIPHERAL [None]
  - RENAL FAILURE [None]
  - NAUSEA [None]
  - STOMATITIS [None]
